FAERS Safety Report 13408449 (Version 1)
Quarter: 2017Q2

REPORT INFORMATION
  Report Type: Spontaneous
  Country: US (occurrence: US)
  Receive Date: 20170405
  Receipt Date: 20170405
  Transmission Date: 20170830
  Serious: Yes (Other)
  Sender: FDA-Public Use
  Company Number: None

PATIENT
  Age: 64 Year
  Sex: Female
  Weight: 69.75 kg

DRUGS (10)
  1. K SUPPLEMENT [Concomitant]
  2. D SUPPLEMENT [Concomitant]
  3. OTC DIGESTIVE ENZYMES [Concomitant]
  4. OTC BETAINE HCL WITH PEPSIN [Concomitant]
  5. LEVOTHYROXINE. [Suspect]
     Active Substance: LEVOTHYROXINE
     Indication: AUTOIMMUNE THYROIDITIS
     Dosage: ?          OTHER STRENGTH:MCG;QUANTITY:1 TABLET(S);?
     Route: 048
     Dates: start: 20170101, end: 20170331
  6. B SUPPLEMENT [Concomitant]
  7. A SUPPLEMENT [Concomitant]
  8. E WITH SELENIUM SUPPLEMENT [Concomitant]
  9. MEGA MINERAL SUPPL [Concomitant]
  10. C SUPPLEMENT [Concomitant]

REACTIONS (1)
  - Alopecia [None]

NARRATIVE: CASE EVENT DATE: 20170201
